FAERS Safety Report 5602894-0 (Version None)
Quarter: 2008Q1

REPORT INFORMATION
  Report Type: 
  Country: None (occurrence: None)
  Receive Date: 20080125
  Receipt Date: 20080117
  Transmission Date: 20080703
  Serious: Yes (Hospitalization)
  Sender: FDA-Public Use
  Company Number: DE-BOEHRINGER INGELHEIM PHARMACEUTICALS, INC.-2007-DE-07494BY

PATIENT
  Sex: Male

DRUGS (1)
  1. KINZALMONO [Suspect]
     Indication: HYPERTENSION
     Route: 048

REACTIONS (1)
  - PITYRIASIS LICHENOIDES ET VARIOLIFORMIS ACUTA [None]
